FAERS Safety Report 19037923 (Version 2)
Quarter: 2022Q1

REPORT INFORMATION
  Report Type: Spontaneous
  Country: US (occurrence: US)
  Receive Date: 20210322
  Receipt Date: 20220106
  Transmission Date: 20220423
  Serious: Yes (Other)
  Sender: FDA-Public Use
  Company Number: US-PFIZER INC-2021233575

PATIENT
  Age: 82 Year
  Sex: Male

DRUGS (2)
  1. VYNDAQEL [Suspect]
     Active Substance: TAFAMIDIS MEGLUMINE
     Dosage: 80 MG
  2. VYNDAQEL [Suspect]
     Active Substance: TAFAMIDIS MEGLUMINE
     Dosage: 20 MG, 4X/DAY

REACTIONS (26)
  - Atrioventricular block complete [Unknown]
  - Cardiac failure [Unknown]
  - Coronary artery occlusion [Unknown]
  - Neuropathy peripheral [Unknown]
  - Pulmonary hypertension [Unknown]
  - Aortic stenosis [Unknown]
  - Carotid artery stenosis [Unknown]
  - Coronary artery disease [Unknown]
  - Orthopnoea [Unknown]
  - Oedema peripheral [Unknown]
  - Weight decreased [Unknown]
  - Arthralgia [Unknown]
  - Exostosis [Unknown]
  - Periarthritis calcarea [Unknown]
  - Carpal tunnel syndrome [Unknown]
  - Rotator cuff syndrome [Unknown]
  - Hypertension [Unknown]
  - Hyperlipidaemia [Unknown]
  - Osteoarthritis [Unknown]
  - Lumbar spinal stenosis [Unknown]
  - Trigger finger [Unknown]
  - Arteriosclerosis coronary artery [Unknown]
  - Stool analysis abnormal [Unknown]
  - Dyspnoea exertional [Unknown]
  - Dyspnoea paroxysmal nocturnal [Unknown]
  - Off label use [Unknown]
